FAERS Safety Report 9807503 (Version 1)
Quarter: 2014Q1

REPORT INFORMATION
  Report Type: Spontaneous
  Country: US (occurrence: US)
  Receive Date: 20140110
  Receipt Date: 20140110
  Transmission Date: 20141002
  Serious: No
  Sender: FDA-Public Use
  Company Number: US-SANOFI-AVENTIS-2012SA002798

PATIENT
  Age: 91 Year
  Sex: Male
  Weight: 64 kg

DRUGS (3)
  1. PLAVIX [Suspect]
     Indication: TRANSIENT ISCHAEMIC ATTACK
     Route: 048
     Dates: start: 20110818, end: 20120127
  2. ASPIRIN [Concomitant]
     Indication: ARTHRITIS
     Route: 065
     Dates: start: 1930
  3. ASPIRIN [Concomitant]
     Indication: CARDIAC DISORDER
     Route: 065
     Dates: start: 1930

REACTIONS (6)
  - Vertigo positional [Not Recovered/Not Resolved]
  - Condition aggravated [Not Recovered/Not Resolved]
  - Chromaturia [Not Recovered/Not Resolved]
  - Asthenia [Not Recovered/Not Resolved]
  - Skin discolouration [Not Recovered/Not Resolved]
  - Arthralgia [Not Recovered/Not Resolved]
